FAERS Safety Report 15662069 (Version 1)
Quarter: 2018Q4

REPORT INFORMATION
  Report Type: Spontaneous
  Country: US (occurrence: US)
  Receive Date: 20181127
  Receipt Date: 20181127
  Transmission Date: 20190205
  Serious: No
  Sender: FDA-Public Use
  Company Number: US-ELI_LILLY_AND_COMPANY-US201811006459

PATIENT
  Sex: Female

DRUGS (3)
  1. TOPAMAC [Concomitant]
     Active Substance: TOPIRAMATE
  2. BOTOX [Concomitant]
     Active Substance: ONABOTULINUMTOXINA
  3. GALCANEZUMAB [Suspect]
     Active Substance: GALCANEZUMAB
     Indication: MIGRAINE
     Dosage: UNK, UNKNOWN
     Route: 058

REACTIONS (3)
  - Alopecia [Unknown]
  - Fibromyalgia [Unknown]
  - Irritable bowel syndrome [Unknown]
